FAERS Safety Report 7293245-7 (Version None)
Quarter: 2011Q1

REPORT INFORMATION
  Report Type: 
  Country: None (occurrence: None)
  Receive Date: 20110215
  Receipt Date: 20110204
  Transmission Date: 20110831
  Serious: Yes (Death)
  Sender: FDA-Public Use
  Company Number: US-KINGPHARMUSA00001-K201100090

PATIENT
  Age: 61 Year
  Sex: Male
  Weight: 118.82 kg

DRUGS (8)
  1. VOLTAREN [Concomitant]
  2. EMBEDA [Suspect]
     Indication: PAIN MANAGEMENT
     Dosage: 30 MG, BID
     Route: 048
     Dates: start: 20101101, end: 20101101
  3. BACLOFEN [Concomitant]
     Dosage: 10 MG, UNK
  4. LEXAPRO [Concomitant]
     Dosage: 10 MG, QD
  5. ACTOS [Concomitant]
  6. ATENOLOL [Concomitant]
  7. AMBIEN CR [Concomitant]
  8. LOTREL [Concomitant]

REACTIONS (2)
  - ACCIDENTAL OVERDOSE [None]
  - DEATH [None]
